FAERS Safety Report 16093975 (Version 1)
Quarter: 2019Q1

REPORT INFORMATION
  Report Type: Spontaneous
  Country: US (occurrence: US)
  Receive Date: 20190215
  Receipt Date: 20190215
  Transmission Date: 20190418
  Serious: No
  Sender: FDA-Public Use
  Company Number: None

PATIENT
  Age: 73 Year
  Sex: Female
  Weight: 58.97 kg

DRUGS (5)
  1. HOMEOPATHIC THERAPY [Suspect]
     Active Substance: HOMEOPATHICS
     Indication: ASTHMA
     Dosage: ?          QUANTITY:3 DF DOSAGE FORM;?
     Route: 048
  2. DR. KING^S STRESS CONTROL [Suspect]
     Active Substance: VITAMINS
     Indication: STRESS
     Dosage: ?          QUANTITY:3 DF DOSAGE FORM;?
     Route: 048
  3. HERBAL [Concomitant]
     Active Substance: HERBALS
  4. HOMEOPATHIC THERAPY [Suspect]
     Active Substance: HOMEOPATHICS
     Indication: BRONCHOPULMONARY DISEASE
     Dosage: ?          QUANTITY:3 DF DOSAGE FORM;?
     Route: 048
  5. HOMEOPATHIC THERAPY [Suspect]
     Active Substance: HOMEOPATHICS
     Indication: COUGH
     Dosage: ?          QUANTITY:3 DF DOSAGE FORM;?
     Route: 048

REACTIONS (1)
  - Recalled product [None]
